FAERS Safety Report 9624563 (Version 1)
Quarter: 2013Q4

REPORT INFORMATION
  Report Type: Spontaneous
  Country: US (occurrence: US)
  Receive Date: 20131015
  Receipt Date: 20131015
  Transmission Date: 20140711
  Serious: Yes (Other)
  Sender: FDA-Public Use
  Company Number: US-ACTAVIS-2013-17897

PATIENT
  Age: 49 Year
  Sex: Female
  Weight: 73 kg

DRUGS (3)
  1. FENTANYL-75 (WATSON LABORATORIES) [Suspect]
     Indication: PAIN
     Dosage: 2 PATCHES EVERY 48 HOURS
     Route: 062
     Dates: start: 20130902
  2. PRENATAL VITAMINS                  /01549301/ [Concomitant]
     Indication: SUPPLEMENTATION THERAPY
     Dosage: 2 TABLETS, DAILY
     Route: 048
     Dates: start: 2012
  3. OXYCONTIN [Concomitant]
     Indication: PAIN
     Dosage: 40 MG, TID
     Route: 048
     Dates: start: 2012

REACTIONS (5)
  - Pain [Not Recovered/Not Resolved]
  - Vomiting [Recovered/Resolved]
  - Nervousness [Not Recovered/Not Resolved]
  - Palpitations [Not Recovered/Not Resolved]
  - Drug ineffective [Not Recovered/Not Resolved]
